FAERS Safety Report 9131017 (Version 2)
Quarter: 2013Q2

REPORT INFORMATION
  Report Type: Spontaneous
  Country: TW (occurrence: TW)
  Receive Date: 20130301
  Receipt Date: 20130506
  Transmission Date: 20140414
  Serious: Yes (Hospitalization)
  Sender: FDA-Public Use
  Company Number: TW-SANOFI-AVENTIS-2013SA017313

PATIENT
  Age: 60 Year
  Sex: Male

DRUGS (4)
  1. JEVTANA [Suspect]
     Indication: PROSTATE CANCER
     Route: 065
     Dates: start: 20121123, end: 20121123
  2. ANTIHISTAMINES [Concomitant]
     Indication: PREMEDICATION
     Dates: start: 20121123, end: 20121123
  3. CORTICOSTEROID NOS [Concomitant]
     Indication: PREMEDICATION
     Dates: start: 20121123, end: 20121123
  4. H2-RECEPTOR ANTAGONISTS [Concomitant]
     Indication: PREMEDICATION
     Dates: start: 20121123, end: 20121123

REACTIONS (25)
  - Melaena [Not Recovered/Not Resolved]
  - Respiratory failure [Unknown]
  - Dyspnoea [Unknown]
  - Abdominal distension [Unknown]
  - Metastases to bone [Unknown]
  - Arthralgia [Unknown]
  - Chest pain [Unknown]
  - Haemodynamic instability [Unknown]
  - Leukocytosis [Unknown]
  - Ecchymosis [Unknown]
  - Petechiae [Unknown]
  - Haemorrhoids [Recovered/Resolved]
  - Anal abscess [Recovered/Resolved]
  - Diarrhoea [Not Recovered/Not Resolved]
  - Pancytopenia [Recovered/Resolved]
  - Haemoglobin decreased [Recovered/Resolved]
  - White blood cell count decreased [Unknown]
  - Platelet count decreased [Unknown]
  - Sepsis [Unknown]
  - Pyrexia [Unknown]
  - Hypotension [Unknown]
  - Abdominal discomfort [Unknown]
  - Pyrexia [Recovering/Resolving]
  - Chills [Unknown]
  - Wound infection [Unknown]
